FAERS Safety Report 9542180 (Version 2)
Quarter: 2013Q3

REPORT INFORMATION
  Report Type: Spontaneous
  Country: BR (occurrence: BR)
  Receive Date: 20130923
  Receipt Date: 20130923
  Transmission Date: 20140515
  Serious: Yes (Death, Hospitalization, Other)
  Sender: FDA-Public Use
  Company Number: BR-PFIZER INC-2013182267

PATIENT
  Age: 71 Year
  Sex: Male

DRUGS (2)
  1. SUTENT [Suspect]
     Indication: RENAL CELL CARCINOMA
     Dosage: 50 MG, CYCLIC (CYCLE 4 PER 2)
     Route: 048
     Dates: start: 20130613
  2. ATENOLOL [Concomitant]
     Indication: HYPERTENSION
     Dosage: UNK

REACTIONS (14)
  - Death [Fatal]
  - Circulatory collapse [Unknown]
  - Anaemia [Unknown]
  - Hypertension [Unknown]
  - Diarrhoea [Recovered/Resolved]
  - Wound [Recovering/Resolving]
  - Blood pressure abnormal [Unknown]
  - Erythema [Not Recovered/Not Resolved]
  - Skin burning sensation [Unknown]
  - Vomiting [Unknown]
  - Fall [Unknown]
  - Face injury [Unknown]
  - Feeling abnormal [Unknown]
  - Visual impairment [Unknown]
